FAERS Safety Report 21909707 (Version 1)
Quarter: 2023Q1

REPORT INFORMATION
  Report Type: Spontaneous
  Country: US (occurrence: US)
  Receive Date: 20230125
  Receipt Date: 20230125
  Transmission Date: 20230418
  Serious: Yes (Hospitalization, Disabling, Other)
  Sender: FDA-Public Use
  Company Number: US-009507513-1305USA005521

PATIENT
  Sex: Female

DRUGS (4)
  1. FOSAMAX [Suspect]
     Active Substance: ALENDRONATE SODIUM
     Indication: Osteoporosis
     Dosage: 70 MG, QW
     Route: 048
     Dates: start: 20000928
  2. ALENDRONATE SODIUM [Suspect]
     Active Substance: ALENDRONATE SODIUM
     Indication: Osteoporosis
     Dosage: 70 MG, UNK
     Route: 048
     Dates: start: 20080204, end: 20111101
  3. CALCIUM [Concomitant]
     Active Substance: CALCIUM
     Dosage: 1500 MG, QD
     Dates: start: 1995
  4. VITAMINS NOS [Concomitant]
     Active Substance: VITAMINS
     Dosage: 2000 IU, QD
     Dates: start: 1995

REACTIONS (26)
  - Femur fracture [Recovered/Resolved]
  - Intramedullary rod insertion [Recovered/Resolved]
  - Femur fracture [Recovered/Resolved]
  - Intramedullary rod insertion [Recovered/Resolved]
  - Breast cancer [Unknown]
  - Low turnover osteopathy [Not Recovered/Not Resolved]
  - Seizure [Unknown]
  - Thrombotic thrombocytopenic purpura [Unknown]
  - Thrombosis [Unknown]
  - Interstitial lung disease [Unknown]
  - Hypercholesterolaemia [Unknown]
  - Radiotherapy [Unknown]
  - CADASIL [Unknown]
  - Nodal rhythm [Unknown]
  - Blood urine present [Unknown]
  - Urine analysis abnormal [Unknown]
  - Fall [Unknown]
  - Breast operation [Unknown]
  - Incision site pain [Unknown]
  - Gastric occult blood positive [Unknown]
  - Mouth injury [Unknown]
  - Confusion postoperative [Recovered/Resolved]
  - Gait disturbance [Unknown]
  - Back pain [Not Recovered/Not Resolved]
  - Nausea [Unknown]
  - Nausea [Unknown]

NARRATIVE: CASE EVENT DATE: 20000101
